FAERS Safety Report 16955983 (Version 2)
Quarter: 2020Q1

REPORT INFORMATION
  Report Type: Spontaneous
  Country: US (occurrence: US)
  Receive Date: 20191024
  Receipt Date: 20200325
  Transmission Date: 20200409
  Serious: No
  Sender: FDA-Public Use
  Company Number: US-MYLANLABS-2019M1095622

PATIENT
  Sex: Female
  Weight: 60 kg

DRUGS (3)
  1. PROLIA [Concomitant]
     Active Substance: DENOSUMAB
     Indication: BONE DENSITY DECREASED
     Dosage: UNK
  2. MORPHINE [Concomitant]
     Active Substance: MORPHINE
     Indication: PAIN
     Dosage: 15 MILLIGRAM (ONE UP TO 3 TIMES DAILY)
  3. FENTANYL TRANSDERMAL SYSTEM [Suspect]
     Active Substance: FENTANYL
     Indication: FIBROMYALGIA
     Dosage: UNK (2 YEARS MORE)
     Route: 062

REACTIONS (3)
  - Product adhesion issue [Recovering/Resolving]
  - Therapeutic product effect decreased [Recovered/Resolved]
  - Application site rash [Not Recovered/Not Resolved]
